APPROVED DRUG PRODUCT: XACDURO (COPACKAGED)
Active Ingredient: DURLOBACTAM SODIUM; DURLOBACTAM SODIUM; SULBACTAM SODIUM
Strength: EQ 500MG BASE/VIAL; EQ 500MG BASE/VIAL;EQ 1GM BASE/VIAL
Dosage Form/Route: POWDER;INTRAVENOUS
Application: N216974 | Product #001
Applicant: ENTASIS THERAPEUTICS INC
Approved: May 23, 2023 | RLD: Yes | RS: Yes | Type: RX

PATENTS:
Patent 10376499 | Expires: Nov 17, 2035
Patent 9968593 | Expires: Nov 17, 2035
Patent 9623014 | Expires: Apr 2, 2033
Patent 9309245 | Expires: Apr 2, 2033

EXCLUSIVITY:
Code: NCE | Date: May 23, 2028
Code: GAIN | Date: May 23, 2033